FAERS Safety Report 19974683 (Version 5)
Quarter: 2022Q3

REPORT INFORMATION
  Report Type: Report from Study
  Country: US (occurrence: US)
  Receive Date: 20211020
  Receipt Date: 20220707
  Transmission Date: 20221026
  Serious: Yes (Hospitalization, Other)
  Sender: FDA-Public Use
  Company Number: US-TAKEDA-2021TUS064041

PATIENT
  Sex: Male
  Weight: 77 kg

DRUGS (2)
  1. MOBOCERTINIB [Suspect]
     Active Substance: MOBOCERTINIB
     Indication: Lung neoplasm malignant
     Dosage: 160 MILLIGRAM, QD
     Route: 048
     Dates: start: 20210601
  2. MOBOCERTINIB [Suspect]
     Active Substance: MOBOCERTINIB
     Indication: Metastases to lung
     Dosage: 80 MILLIGRAM, QD
     Route: 048

REACTIONS (7)
  - Pneumonia [Unknown]
  - Pollakiuria [Unknown]
  - Feeling abnormal [Unknown]
  - Illness [Unknown]
  - Dyspepsia [Unknown]
  - Diarrhoea [Unknown]
  - Product dose omission issue [Unknown]
